FAERS Safety Report 6491255-0 (Version None)
Quarter: 2009Q4

REPORT INFORMATION
  Report Type: 
  Country: None (occurrence: None)
  Receive Date: 20091211
  Receipt Date: 20091203
  Transmission Date: 20100525
  Serious: Yes (Other)
  Sender: FDA-Public Use
  Company Number: PHEH2009US17195

PATIENT
  Age: 63 Year
  Sex: Female

DRUGS (4)
  1. RECLAST [Suspect]
     Dosage: UNK
  2. PREVACID [Concomitant]
     Dosage: UNK, UNK
  3. LIPITOR [Concomitant]
     Dosage: UNK, UNK
  4. MORPHINE [Concomitant]
     Dosage: UNK, UNK

REACTIONS (6)
  - HEADACHE [None]
  - INFLUENZA LIKE ILLNESS [None]
  - MALAISE [None]
  - NAUSEA [None]
  - RENAL DISORDER [None]
  - VOMITING [None]
